FAERS Safety Report 5176398-6 (Version None)
Quarter: 2006Q4

REPORT INFORMATION
  Report Type: 
  Country: None (occurrence: None)
  Receive Date: 20061215
  Receipt Date: 20061205
  Transmission Date: 20070319
  Serious: Yes (Hospitalization)
  Sender: FDA-Public Use
  Company Number: JP-MERCK-0612USA02145B1

PATIENT
  Weight: 1 kg

DRUGS (1)
  1. DECADRON [Suspect]
     Indication: PROPHYLAXIS
     Route: 064

REACTIONS (11)
  - APGAR SCORE LOW [None]
  - DRUG EXPOSURE DURING PREGNANCY [None]
  - INTESTINAL DILATATION [None]
  - INTESTINAL PERFORATION [None]
  - INTRAVENTRICULAR HAEMORRHAGE [None]
  - INTRAVENTRICULAR HAEMORRHAGE NEONATAL [None]
  - NEONATAL DISORDER [None]
  - NEONATAL RESPIRATORY DISTRESS SYNDROME [None]
  - PATENT DUCTUS ARTERIOSUS [None]
  - PREMATURE BABY [None]
  - RESPIRATORY DISTRESS [None]
